FAERS Safety Report 5620731-5 (Version None)
Quarter: 2008Q1

REPORT INFORMATION
  Report Type: 
  Country: None (occurrence: None)
  Receive Date: 20080208
  Receipt Date: 20080204
  Transmission Date: 20080703
  Serious: Yes (Hospitalization)
  Sender: FDA-Public Use
  Company Number: AU-MERCK-0802AUS00021

PATIENT
  Age: 60 Year
  Sex: Female

DRUGS (4)
  1. FOSAMAX [Suspect]
     Indication: OSTEOPOROSIS
     Route: 048
     Dates: start: 20050101
  2. GLATIRAMER ACETATE [Concomitant]
     Indication: MULTIPLE SCLEROSIS
     Route: 065
  3. BOSENTAN [Concomitant]
     Indication: PULMONARY HYPERTENSION
     Route: 065
  4. CAFFEINE AND DIPYRONE AND ERGOTAMINE TARTRATE [Concomitant]
     Indication: MIGRAINE
     Route: 065

REACTIONS (3)
  - FACIAL BONES FRACTURE [None]
  - FALL [None]
  - WRIST FRACTURE [None]
